FAERS Safety Report 17330196 (Version 1)
Quarter: 2020Q1

REPORT INFORMATION
  Report Type: Report from Study
  Country: CA (occurrence: CA)
  Receive Date: 20200127
  Receipt Date: 20200127
  Transmission Date: 20200409
  Serious: Yes (Hospitalization)
  Sender: FDA-Public Use
  Company Number: CA-ACTELION-A-NJ2020-200862

PATIENT
  Sex: Male
  Weight: 75 kg

DRUGS (4)
  1. SYMBICORT [Concomitant]
     Active Substance: BUDESONIDE\FORMOTEROL FUMARATE DIHYDRATE
  2. TRACLEER [Suspect]
     Active Substance: BOSENTAN
     Indication: PULMONARY HYPERTENSION
     Dosage: 125 MG
     Route: 048
     Dates: start: 20170212
  3. ANAGRELIDE. [Concomitant]
     Active Substance: ANAGRELIDE HYDROCHLORIDE
  4. XARELTO [Concomitant]
     Active Substance: RIVAROXABAN

REACTIONS (2)
  - Pulmonary endarterectomy [Recovering/Resolving]
  - Pulmonary embolism [Recovering/Resolving]
